FAERS Safety Report 13371593 (Version 2)
Quarter: 2017Q1

REPORT INFORMATION
  Report Type: Spontaneous
  Country: BR (occurrence: BR)
  Receive Date: 20170324
  Receipt Date: 20170331
  Transmission Date: 20170429
  Serious: Yes (Other)
  Sender: FDA-Public Use
  Company Number: BR-009507513-1703BRA009657

PATIENT
  Age: 21 Year
  Sex: Female
  Weight: 85 kg

DRUGS (2)
  1. IMPLANON [Suspect]
     Active Substance: ETONOGESTREL
     Indication: MENSTRUAL CYCLE MANAGEMENT
  2. IMPLANON [Suspect]
     Active Substance: ETONOGESTREL
     Indication: ENDOMETRIOSIS
     Dosage: 1 IMPLANT, UNK
     Route: 059
     Dates: start: 1999, end: 1999

REACTIONS (4)
  - Nephrolithiasis [Recovered/Resolved]
  - Product use issue [Unknown]
  - Menorrhagia [Recovered/Resolved]
  - Food allergy [Not Recovered/Not Resolved]

NARRATIVE: CASE EVENT DATE: 1999
